FAERS Safety Report 26211281 (Version 1)
Quarter: 2025Q4

REPORT INFORMATION
  Report Type: Spontaneous
  Country: JP (occurrence: JP)
  Receive Date: 20251230
  Receipt Date: 20251230
  Transmission Date: 20260117
  Serious: Yes (Hospitalization, Other)
  Sender: Phathom Pharmaceuticals
  Company Number: JP-PHATHOM PHARMACEUTICALS INC.-2025PHT03806

PATIENT
  Age: 66 Year
  Sex: Male

DRUGS (1)
  1. VONOPRAZAN [Suspect]
     Active Substance: VONOPRAZAN
     Indication: Product used for unknown indication
     Route: 065

REACTIONS (2)
  - Hypomagnesaemia [Recovering/Resolving]
  - Altered state of consciousness [Recovering/Resolving]
